FAERS Safety Report 16719405 (Version 2)
Quarter: 2019Q3

REPORT INFORMATION
  Report Type: Spontaneous
  Country: US (occurrence: US)
  Receive Date: 20190820
  Receipt Date: 20190927
  Transmission Date: 20191005
  Serious: Yes (Hospitalization, Other)
  Sender: FDA-Public Use
  Company Number: US-JNJFOC-20190822244

PATIENT
  Sex: Male

DRUGS (3)
  1. IMBRUVICA [Suspect]
     Active Substance: IBRUTINIB
     Indication: PRODUCT USED FOR UNKNOWN INDICATION
     Dosage: 420 MG, QD
     Route: 048
     Dates: end: 20190812
  2. TAMSULOSIN HCL [Concomitant]
     Active Substance: TAMSULOSIN HYDROCHLORIDE
  3. FINASTERIDE. [Concomitant]
     Active Substance: FINASTERIDE

REACTIONS (3)
  - Cholelithiasis [Unknown]
  - Urinary tract obstruction [Recovered/Resolved]
  - Benign prostatic hyperplasia [Recovered/Resolved]
